FAERS Safety Report 5230078-7 (Version None)
Quarter: 2007Q1

REPORT INFORMATION
  Report Type: 
  Country: None (occurrence: None)
  Receive Date: 20070206
  Receipt Date: 20061025
  Transmission Date: 20070707
  Serious: No
  Sender: FDA-Public Use
  Company Number: US-GLAXOSMITHKLINE-A0624826A

PATIENT
  Age: 65 Year
  Sex: Female

DRUGS (2)
  1. PAXIL [Suspect]
     Indication: DEPRESSION
     Dosage: 20MG PER DAY
     Route: 048
     Dates: start: 19940301
  2. NO CONCURRENT MEDICATIONS [Concomitant]

REACTIONS (5)
  - ANXIETY [None]
  - DIZZINESS [None]
  - DRUG WITHDRAWAL SYNDROME [None]
  - NAUSEA [None]
  - TINNITUS [None]
